FAERS Safety Report 4397012-3 (Version None)
Quarter: 2004Q3

REPORT INFORMATION
  Report Type: 
  Country: None (occurrence: None)
  Receive Date: 20040714
  Receipt Date: 20040708
  Transmission Date: 20050211
  Serious: Yes (Other)
  Sender: FDA-Public Use
  Company Number: PHRM2004FR02317

PATIENT
  Age: 38 Year
  Sex: Female

DRUGS (2)
  1. VOLTAREN [Suspect]
     Indication: SCIATICA
     Route: 048
  2. MYOLASTAN [Concomitant]
     Route: 048

REACTIONS (2)
  - LEUKOPENIA [None]
  - NEUTROPENIA [None]
